FAERS Safety Report 18780147 (Version 1)
Quarter: 2021Q1

REPORT INFORMATION
  Report Type: Spontaneous
  Country: CH (occurrence: CH)
  Receive Date: 20210125
  Receipt Date: 20210125
  Transmission Date: 20210419
  Serious: Yes (Death)
  Sender: FDA-Public Use
  Company Number: CH-BIOVITRUM-2020CH6958

PATIENT
  Sex: Male
  Weight: 130 kg

DRUGS (1)
  1. EMAPALUMAB [Suspect]
     Active Substance: EMAPALUMAB
     Indication: FAMILIAL HAEMOPHAGOCYTIC LYMPHOHISTIOCYTOSIS
     Route: 042
     Dates: start: 20201124, end: 20201124

REACTIONS (2)
  - COVID-19 pneumonia [Fatal]
  - Systemic mycosis [Fatal]
